FAERS Safety Report 9850216 (Version 1)
Quarter: 2014Q1

REPORT INFORMATION
  Report Type: Spontaneous
  Country: IT (occurrence: IT)
  Receive Date: 20140128
  Receipt Date: 20140128
  Transmission Date: 20141002
  Serious: Yes (Other)
  Sender: FDA-Public Use
  Company Number: IT-ACTAVIS-2014-00848

PATIENT
  Age: 48 Year
  Sex: Female
  Weight: 68 kg

DRUGS (1)
  1. PACLITAXEL (UNKNOWN) [Suspect]
     Indication: BREAST CANCER
     Dosage: 135 MG, 1/WEEK
     Route: 042
     Dates: start: 20131216, end: 20140107

REACTIONS (1)
  - Alanine aminotransferase increased [Unknown]
